FAERS Safety Report 7515055-5 (Version None)
Quarter: 2011Q2

REPORT INFORMATION
  Report Type: 
  Country: None (occurrence: None)
  Receive Date: 20110601
  Receipt Date: 20110523
  Transmission Date: 20111010
  Serious: Yes (Death, Other)
  Sender: FDA-Public Use
  Company Number: FR-ASTELLAS-2011US001877

PATIENT
  Sex: Male
  Weight: 80 kg

DRUGS (9)
  1. LINEZOLID [Concomitant]
     Indication: SEPSIS
     Dosage: 1200 MG, UNKNOWN/D
     Route: 042
     Dates: start: 20110403, end: 20110405
  2. NORADRENALIN [Concomitant]
     Indication: SEPSIS
     Dosage: UNK
     Route: 042
     Dates: start: 20110402, end: 20110405
  3. CIPROFLOXACIN HCL [Concomitant]
     Indication: SEPSIS
     Dosage: 800 MG, UNKNOWN/D
     Route: 042
     Dates: start: 20110402, end: 20110405
  4. AMBISOME [Suspect]
     Indication: ZYGOMYCOSIS
     Dosage: 10 MG/KG, UID/QD
     Route: 042
     Dates: start: 20110331, end: 20110401
  5. AMBISOME [Suspect]
     Dosage: 10 MG/KG, UID/QD
     Route: 042
     Dates: start: 20110404
  6. VORICONAZOLE [Concomitant]
     Indication: PRODUCT USED FOR UNKNOWN INDICATION
     Dosage: UNK
     Route: 065
  7. TIENAM [Concomitant]
     Indication: SEPSIS
     Dosage: 1000 UNK, UNKNOWN/D
     Route: 042
     Dates: start: 20110402, end: 20110405
  8. AMBISOME [Suspect]
     Dosage: 7.5 MG/KG, UID/QD
     Route: 042
     Dates: start: 20110402, end: 20110403
  9. PROPOFOL [Concomitant]
     Indication: SEDATION
     Dosage: UNK
     Route: 042
     Dates: start: 20110402, end: 20110405

REACTIONS (5)
  - MULTI-ORGAN DISORDER [None]
  - TOXICITY TO VARIOUS AGENTS [None]
  - RENAL IMPAIRMENT [None]
  - SEPTIC SHOCK [None]
  - CARDIO-RESPIRATORY ARREST [None]
